FAERS Safety Report 5902274-4 (Version None)
Quarter: 2008Q3

REPORT INFORMATION
  Report Type: 
  Country: None (occurrence: None)
  Receive Date: 20080929
  Receipt Date: 20080624
  Transmission Date: 20090109
  Serious: No
  Sender: FDA-Public Use
  Company Number: US-BAUSCH-2008BL002102

PATIENT
  Age: 37 Year
  Sex: Female

DRUGS (2)
  1. ALAWAY [Suspect]
     Indication: HYPERSENSITIVITY
     Route: 047
     Dates: start: 20080507, end: 20080509
  2. CLARITIN /USA/ [Concomitant]
     Indication: HYPERSENSITIVITY
     Route: 048
     Dates: start: 20080507

REACTIONS (1)
  - DRUG EFFECT DECREASED [None]
